FAERS Safety Report 25520344 (Version 2)
Quarter: 2025Q3

REPORT INFORMATION
  Report Type: Spontaneous
  Country: CN (occurrence: CN)
  Receive Date: 20250704
  Receipt Date: 20250731
  Transmission Date: 20251021
  Serious: No
  Sender: JOHNSON AND JOHNSON
  Company Number: CN-JNJFOC-20250634792

PATIENT
  Sex: Male
  Weight: 80 kg

DRUGS (1)
  1. GUSELKUMAB [Suspect]
     Active Substance: GUSELKUMAB
     Indication: Psoriasis
     Route: 065
     Dates: start: 202406

REACTIONS (4)
  - Needle issue [Unknown]
  - Scratch [Unknown]
  - Accidental exposure to product [Unknown]
  - Product outer packaging issue [Unknown]
